FAERS Safety Report 5256374-5 (Version None)
Quarter: 2007Q1

REPORT INFORMATION
  Report Type: 
  Country: None (occurrence: None)
  Receive Date: 20070306
  Receipt Date: 20070226
  Transmission Date: 20070707
  Serious: Yes (Disabling)
  Sender: FDA-Public Use
  Company Number: GB-GLAXOSMITHKLINE-B0460760A

PATIENT
  Age: 42 Year
  Sex: Male

DRUGS (1)
  1. NICOTINE LOZENGE [Suspect]
     Route: 002

REACTIONS (1)
  - GINGIVITIS ULCERATIVE [None]
